FAERS Safety Report 5545563-8 (Version None)
Quarter: 2007Q4

REPORT INFORMATION
  Report Type: 
  Country: None (occurrence: None)
  Receive Date: 20071211
  Receipt Date: 20071205
  Transmission Date: 20080405
  Serious: Yes (Other)
  Sender: FDA-Public Use
  Company Number: BR-BRISTOL-MYERS SQUIBB COMPANY-14007108

PATIENT
  Age: 46 Year
  Sex: Male

DRUGS (6)
  1. REYATAZ [Suspect]
     Indication: HIV INFECTION
     Route: 048
  2. DICLOFENAC [Suspect]
     Dates: start: 20070101
  3. RITONAVIR [Concomitant]
  4. TENOFOVIR DISOPROXIL FUMARATE [Concomitant]
  5. LAMIVUDINE [Concomitant]
  6. CAPTOPRIL [Concomitant]

REACTIONS (1)
  - RENAL FAILURE CHRONIC [None]
